FAERS Safety Report 5196409-1 (Version None)
Quarter: 2006Q4

REPORT INFORMATION
  Report Type: 
  Country: None (occurrence: None)
  Receive Date: 20061222
  Receipt Date: 20061211
  Transmission Date: 20070319
  Serious: Yes (Hospitalization)
  Sender: FDA-Public Use
  Company Number: 2006002242

PATIENT
  Age: 59 Year
  Sex: Male

DRUGS (3)
  1. ERLOTINIB (TABLET) [Suspect]
     Indication: NON-SMALL CELL LUNG CANCER
     Dosage: (QD) ORAL
     Route: 048
     Dates: start: 20061025
  2. GEMCITABINE [Suspect]
     Indication: NON-SMALL CELL LUNG CANCER
     Dosage: 1950 MG INTRAVENOUS
     Route: 042
     Dates: start: 20061108, end: 20061115
  3. CARBOPLATIN [Suspect]
     Indication: NON-SMALL CELL LUNG CANCER
     Dosage: 425 MG INTRAVENOUS
     Route: 042
     Dates: start: 20061108

REACTIONS (1)
  - ANAEMIA [None]
